FAERS Safety Report 4873870-0 (Version None)
Quarter: 2006Q1

REPORT INFORMATION
  Report Type: 
  Country: None (occurrence: None)
  Receive Date: 20060104
  Receipt Date: 20051221
  Transmission Date: 20060701
  Serious: Yes (Hospitalization)
  Sender: FDA-Public Use
  Company Number: 2005155735

PATIENT
  Age: 83 Year
  Sex: Female

DRUGS (4)
  1. MACUGEN [Suspect]
     Indication: MACULAR DEGENERATION
     Dosage: 0.3 MG (0.3 MG, 1 IN 6 WK), INTRAVENOUS
     Route: 042
     Dates: start: 20051027
  2. XYLOCAINE TOPICAL (LIDOCAINE HYDROCHLORIDE) [Concomitant]
  3. XYLOCAINE [Concomitant]
  4. POVIDONE IODINE [Concomitant]

REACTIONS (2)
  - CHEST PAIN [None]
  - HYPERSENSITIVITY [None]
